FAERS Safety Report 4270265-8 (Version None)
Quarter: 2004Q1

REPORT INFORMATION
  Report Type: 
  Country: None (occurrence: None)
  Receive Date: 20040113
  Receipt Date: 20040113
  Transmission Date: 20041129
  Serious: Yes (Hospitalization)
  Sender: FDA-Public Use
  Company Number: None

PATIENT
  Sex: Male
  Weight: 107.9561 kg

DRUGS (1)
  1. THALIDOMIDE 50 MG TABS (CELGENE) [Suspect]
     Indication: NON-SMALL CELL LUNG CANCER STAGE IIIB
     Dosage: 200 MG PO @ HS
     Route: 048
     Dates: start: 20030527

REACTIONS (1)
  - PERICARDIAL EFFUSION [None]
